FAERS Safety Report 17963356 (Version 1)
Quarter: 2020Q2

REPORT INFORMATION
  Report Type: Spontaneous
  Country: US (occurrence: US)
  Receive Date: 20200630
  Receipt Date: 20200630
  Transmission Date: 20200714
  Serious: No
  Sender: FDA-Public Use
  Company Number: US-AMNEAL PHARMACEUTICALS-2020-AMRX-01121

PATIENT
  Sex: Female
  Weight: 72 kg

DRUGS (3)
  1. PROBIOTICS NOS [Concomitant]
     Active Substance: PROBIOTICS NOS
     Indication: PRODUCT USED FOR UNKNOWN INDICATION
     Dosage: UNK
     Route: 065
  2. PROGESTERONE. [Suspect]
     Active Substance: PROGESTERONE
     Indication: MENSTRUAL DISORDER
     Dosage: 1 CAPSULES NIGHT
     Route: 048
     Dates: start: 2020, end: 202004
  3. PROGESTERONE. [Suspect]
     Active Substance: PROGESTERONE
     Indication: INSOMNIA
     Dosage: 1 CAPSULES NIGHT
     Route: 048
     Dates: start: 2019

REACTIONS (2)
  - Insomnia [Recovered/Resolved]
  - Product quality issue [Unknown]

NARRATIVE: CASE EVENT DATE: 2020
